FAERS Safety Report 18305023 (Version 2)
Quarter: 2020Q4

REPORT INFORMATION
  Report Type: Report from Study
  Country: None (occurrence: US)
  Receive Date: 20200924
  Receipt Date: 20201104
  Transmission Date: 20210113
  Serious: Yes (Other)
  Sender: FDA-Public Use
  Company Number: US-ABBVIE-20K-163-3578556-00

PATIENT
  Age: 65 Year
  Sex: Male
  Weight: 97.16 kg

DRUGS (2)
  1. LUPRON DEPOT [Suspect]
     Active Substance: LEUPROLIDE ACETATE
     Indication: PROSTATE CANCER
     Route: 058
     Dates: start: 20190901, end: 202007
  2. IODINE. [Suspect]
     Active Substance: IODINE
     Indication: PRODUCT USED FOR UNKNOWN INDICATION
     Route: 065

REACTIONS (27)
  - Physical disability [Not Recovered/Not Resolved]
  - Weight increased [Recovered/Resolved]
  - Vision blurred [Unknown]
  - Nausea [Recovered/Resolved]
  - Mental impairment [Not Recovered/Not Resolved]
  - Road traffic accident [Unknown]
  - Blindness [Unknown]
  - Iodine allergy [Recovered/Resolved]
  - Ureteric obstruction [Recovered/Resolved]
  - Muscle atrophy [Not Recovered/Not Resolved]
  - Palpitations [Not Recovered/Not Resolved]
  - Accident at work [Unknown]
  - Vomiting [Recovered/Resolved]
  - Weight decreased [Recovered/Resolved]
  - Confusional state [Recovering/Resolving]
  - Body height decreased [Recovered/Resolved]
  - Muscle atrophy [Recovered/Resolved]
  - Confusional state [Unknown]
  - Dizziness [Unknown]
  - Heart rate irregular [Recovering/Resolving]
  - Pain [Recovered/Resolved]
  - Asthenia [Recovering/Resolving]
  - Arrhythmia [Not Recovered/Not Resolved]
  - Visual impairment [Recovering/Resolving]
  - Feeling abnormal [Recovering/Resolving]
  - Hot flush [Recovered/Resolved]
  - Hot flush [Not Recovered/Not Resolved]

NARRATIVE: CASE EVENT DATE: 2019
